FAERS Safety Report 6059868-8 (Version None)
Quarter: 2009Q1

REPORT INFORMATION
  Report Type: 
  Country: None (occurrence: None)
  Receive Date: 20090130
  Receipt Date: 20090119
  Transmission Date: 20090719
  Serious: Yes (Other)
  Sender: FDA-Public Use
  Company Number: US-ELI_LILLY_AND_COMPANY-US200811004590

PATIENT
  Sex: Female

DRUGS (4)
  1. EVISTA [Suspect]
     Indication: OSTEOPOROSIS
     Dosage: 60 MG, DAILY (1/D)
     Route: 065
     Dates: start: 20080601, end: 20081116
  2. ACIPHEX [Concomitant]
     Dosage: UNK, DAILY (1/D)
     Route: 065
  3. VITAMINS [Concomitant]
     Dosage: UNK, UNKNOWN
     Route: 065
  4. VITAMIN B6 [Concomitant]
     Indication: MUSCLE SPASMS
     Dosage: UNK, UNKNOWN
     Route: 065

REACTIONS (11)
  - ANXIETY [None]
  - ARRHYTHMIA [None]
  - DIZZINESS [None]
  - DYSPNOEA [None]
  - EXTRASYSTOLES [None]
  - FEAR OF DISEASE [None]
  - FEELING ABNORMAL [None]
  - HEART RATE INCREASED [None]
  - MITRAL VALVE PROLAPSE [None]
  - PAIN [None]
  - PALPITATIONS [None]
